FAERS Safety Report 4451252-3 (Version None)
Quarter: 2004Q3

REPORT INFORMATION
  Report Type: 
  Country: None (occurrence: None)
  Receive Date: 20040913
  Receipt Date: 20040713
  Transmission Date: 20050211
  Serious: No
  Sender: FDA-Public Use
  Company Number: 2004-BP-05631BP

PATIENT

DRUGS (12)
  1. SPIRIVA [Suspect]
     Indication: ASTHMA
     Dosage: 18 MCG (18 MCG), IH
     Route: 055
     Dates: start: 20040712, end: 20040716
  2. SPIRIVA [Suspect]
     Indication: CHRONIC OBSTRUCTIVE AIRWAYS DISEASE
     Dosage: 18 MCG (18 MCG), IH
     Route: 055
     Dates: start: 20040712, end: 20040716
  3. PREVACID [Concomitant]
  4. SEREVENT [Concomitant]
  5. XANAX [Concomitant]
  6. FLOVENT (FLUCICASONE PROPIONATE) [Concomitant]
  7. ATROVENT [Concomitant]
  8. PREMARIN CREAM [Concomitant]
  9. MAG-OX (MAGNESIUM OXIDE) [Concomitant]
  10. NIZORIL SHAMPO [Concomitant]
  11. AMBIEN [Concomitant]
  12. NYSTATIN [Concomitant]

REACTIONS (8)
  - EYE IRRITATION [None]
  - EYE PAIN [None]
  - EYE SWELLING [None]
  - HALO VISION [None]
  - HEADACHE [None]
  - KERATOCONJUNCTIVITIS SICCA [None]
  - NAUSEA [None]
  - VISION BLURRED [None]
